FAERS Safety Report 10236256 (Version 1)
Quarter: 2014Q1

REPORT INFORMATION
  Report Type: Spontaneous
  Country: US (occurrence: None)
  Receive Date: 20140306
  Receipt Date: 20140306
  Transmission Date: 20141002
  Serious: Yes (Other)
  Sender: FDA-Public Use
  Company Number: 163-21880-13031298

PATIENT
  Age: 53 Year
  Sex: Male

DRUGS (4)
  1. REVLIMID [Suspect]
     Indication: PLASMA CELL MYELOMA
     Route: 048
     Dates: start: 20130213
  2. CORTICOSTEROID NOS [Suspect]
     Indication: PRODUCT USED FOR UNKNOWN INDICATION
  3. VELCADE (BORTEZOMIB) (UNKNOWN) [Concomitant]
  4. DEXAMETHASONE (DEXAMETHASONE) (UNKNOWN) [Concomitant]

REACTIONS (4)
  - Weight increased [None]
  - Insomnia [None]
  - Dry mouth [None]
  - Local swelling [None]
